FAERS Safety Report 7040906-0 (Version None)
Quarter: 2010Q3

REPORT INFORMATION
  Report Type: 
  Country: None (occurrence: None)
  Receive Date: 20100929
  Receipt Date: 20100823
  Transmission Date: 20110219
  Serious: No
  Sender: FDA-Public Use
  Company Number: US-WYE-H17164210

PATIENT
  Sex: Female

DRUGS (1)
  1. PRISTIQ [Suspect]
     Dosage: 250 MG 1X PER 1 DAY
     Dates: start: 20100101

REACTIONS (2)
  - CONDITION AGGRAVATED [None]
  - HOT FLUSH [None]
